FAERS Safety Report 7018612-8 (Version None)
Quarter: 2010Q3

REPORT INFORMATION
  Report Type: 
  Country: None (occurrence: None)
  Receive Date: 20100924
  Receipt Date: 20100913
  Transmission Date: 20110219
  Serious: Yes (Other)
  Sender: FDA-Public Use
  Company Number: 2010P1001447

PATIENT
  Age: 7 Year
  Sex: Female

DRUGS (8)
  1. PREDNISONE [Suspect]
     Dosage: 40 MG;QD
  2. NSAR [Concomitant]
  3. METHYLPREDNISOLONE  BOLUS THERAPY [Concomitant]
  4. ETANERCEPT (FOLLOWED BY UNKNOWN ANAKINRA) [Concomitant]
  5. CYCLOSPORINE (FOLLOWED BY ETOPOSIDE) [Concomitant]
  6. METHOTREXATE [Concomitant]
  7. FOLIC ACID [Concomitant]
  8. PREV MEDS [Concomitant]

REACTIONS (1)
  - EPIDURAL LIPOMATOSIS [None]
